FAERS Safety Report 5220815-X (Version None)
Quarter: 2007Q1

REPORT INFORMATION
  Report Type: 
  Country: None (occurrence: None)
  Receive Date: 20070126
  Receipt Date: 20070115
  Transmission Date: 20070707
  Serious: Yes (Hospitalization)
  Sender: FDA-Public Use
  Company Number: 2007GB00088

PATIENT
  Age: 81 Year
  Sex: Male

DRUGS (7)
  1. LISINOPRIL [Suspect]
     Indication: HYPERTENSION
     Route: 048
  2. FUROSEMIDE [Suspect]
     Indication: CARDIAC FAILURE
     Route: 048
  3. SPIRONOLACTONE [Suspect]
     Indication: CARDIAC FAILURE
     Route: 048
     Dates: end: 20061221
  4. AMIODARONE HCL [Concomitant]
     Route: 048
  5. BISACODYL [Concomitant]
     Indication: CONSTIPATION
     Route: 048
  6. BISOPROLOL FUMARATE [Concomitant]
     Indication: CARDIAC FAILURE
     Route: 048
  7. CODEINE PHOSPHATE [Concomitant]
     Indication: ANALGESIC EFFECT
     Route: 048

REACTIONS (1)
  - RENAL FAILURE ACUTE [None]
